FAERS Safety Report 6890977-7 (Version None)
Quarter: 2010Q3

REPORT INFORMATION
  Report Type: 
  Country: None (occurrence: None)
  Receive Date: 20100731
  Receipt Date: 20090430
  Transmission Date: 20110219
  Serious: No
  Sender: FDA-Public Use
  Company Number: US-PFIZER INC-2009207130

PATIENT
  Age: 73 Year
  Sex: Male
  Weight: 81.6 kg

DRUGS (3)
  1. LIPITOR [Suspect]
     Indication: HIGH DENSITY LIPOPROTEIN DECREASED
     Dosage: 20 MG, 1X/DAY
     Dates: start: 20090326, end: 20090430
  2. ENALAPRIL [Concomitant]
     Indication: HYPERTENSION
     Dosage: UNK
  3. ALLOPURINOL [Concomitant]
     Indication: BLOOD URIC ACID INCREASED

REACTIONS (1)
  - RASH [None]
